FAERS Safety Report 9636098 (Version 3)
Quarter: 2014Q1

REPORT INFORMATION
  Report Type: Spontaneous
  Country: GB (occurrence: GB)
  Receive Date: 20131021
  Receipt Date: 20140210
  Transmission Date: 20141002
  Serious: Yes (Death, Hospitalization)
  Sender: FDA-Public Use
  Company Number: GB-AMGEN-GBRSP2013072859

PATIENT
  Age: 67 Year
  Sex: Male
  Weight: 57.5 kg

DRUGS (14)
  1. PROLIA [Suspect]
     Indication: OSTEOPOROSIS
     Dosage: 60 MG, Q6MO
     Route: 058
     Dates: start: 20130813, end: 20130816
  2. FINASTERIDE [Concomitant]
     Dosage: 5 MG, QD
     Route: 048
  3. CARBOCISTEINE [Concomitant]
     Dosage: 750 MG, TID
     Route: 048
  4. PREDNISOLONE [Concomitant]
     Dosage: 15 MG, QD
     Route: 048
  5. PROCHLORPERAZINE [Concomitant]
     Dosage: 5 MG, UNK
     Route: 048
  6. BISOPROLOL [Concomitant]
     Dosage: 5 MG, QD
     Route: 048
  7. ALFUZOSIN [Concomitant]
     Dosage: 2.5 MG, QD
     Route: 048
  8. LANSOPRAZOLE [Concomitant]
     Dosage: 30 MG, QD
     Route: 048
  9. BUPRENORPHINE                      /00444002/ [Concomitant]
     Dosage: 10 MUG, UNK
     Route: 062
  10. PARACETAMOL [Concomitant]
     Route: 065
  11. BUTRANS                            /00444001/ [Concomitant]
     Dosage: PATCH
  12. AMOXICILLIN [Concomitant]
  13. SALBUTAMOL [Concomitant]
  14. ATROVENT [Concomitant]

REACTIONS (10)
  - Pneumonia [Fatal]
  - Chylothorax [Fatal]
  - Subcutaneous emphysema [Fatal]
  - Pneumothorax [Fatal]
  - Dyspnoea [Not Recovered/Not Resolved]
  - Respiratory tract infection [Unknown]
  - Malaise [Unknown]
  - Wheezing [Not Recovered/Not Resolved]
  - Localised infection [Unknown]
  - Infection susceptibility increased [Unknown]
